FAERS Safety Report 18633555 (Version 1)
Quarter: 2020Q4

REPORT INFORMATION
  Report Type: Spontaneous
  Country: US (occurrence: US)
  Receive Date: 20201217
  Receipt Date: 20201217
  Transmission Date: 20210114
  Serious: Yes (Hospitalization)
  Sender: FDA-Public Use
  Company Number: None

PATIENT
  Age: 69 Year
  Sex: Male

DRUGS (9)
  1. ESOMEPRAZOLE DR [Concomitant]
     Active Substance: ESOMEPRAZOLE
  2. AMLODIPINE [Concomitant]
     Active Substance: AMLODIPINE BESYLATE
  3. METOPROLOL TAR [Concomitant]
     Active Substance: METOPROLOL TARTRATE
  4. ASPIRIN. [Concomitant]
     Active Substance: ASPIRIN
  5. ISOSORBIDE MONO ER [Concomitant]
  6. PLAVIX [Concomitant]
     Active Substance: CLOPIDOGREL BISULFATE
  7. ZETIA [Concomitant]
     Active Substance: EZETIMIBE
  8. LIPITOR [Concomitant]
     Active Substance: ATORVASTATIN CALCIUM
  9. ESBRIET [Suspect]
     Active Substance: PIRFENIDONE
     Indication: IDIOPATHIC PULMONARY FIBROSIS
     Route: 048
     Dates: start: 20190927

REACTIONS (2)
  - Therapy interrupted [None]
  - Stent placement [None]

NARRATIVE: CASE EVENT DATE: 20201211
